FAERS Safety Report 20701589 (Version 1)
Quarter: 2022Q2

REPORT INFORMATION
  Report Type: Spontaneous
  Country: US (occurrence: None)
  Receive Date: 20220411
  Receipt Date: 20220411
  Transmission Date: 20220721
  Serious: Yes (Other)
  Sender: FDA-Public Use
  Company Number: None

PATIENT
  Age: 41 Year
  Sex: Female

DRUGS (1)
  1. GADOLINIUM [Suspect]
     Active Substance: GADOLINIUM

REACTIONS (6)
  - Pallor [None]
  - Dyspnoea [None]
  - Hyperhidrosis [None]
  - Stridor [None]
  - Lethargy [None]
  - Contrast media reaction [None]

NARRATIVE: CASE EVENT DATE: 20220407
